FAERS Safety Report 13773108 (Version 2)
Quarter: 2018Q1

REPORT INFORMATION
  Report Type: Spontaneous
  Country: US (occurrence: US)
  Receive Date: 20170720
  Receipt Date: 20180227
  Transmission Date: 20180508
  Serious: Yes (Hospitalization, Other)
  Sender: FDA-Public Use
  Company Number: US-ASTRAZENECA-2017SE72530

PATIENT
  Age: 70 Year
  Sex: Female
  Weight: 82.5 kg

DRUGS (12)
  1. BENICAR [Concomitant]
     Active Substance: OLMESARTAN MEDOXOMIL
     Route: 065
     Dates: start: 20160623
  2. FLUOROURACIL. [Concomitant]
     Active Substance: FLUOROURACIL
     Dates: start: 20170816
  3. FOSAMAX [Concomitant]
     Active Substance: ALENDRONATE SODIUM
     Route: 065
     Dates: start: 20160121
  4. IMDUR [Suspect]
     Active Substance: ISOSORBIDE MONONITRATE
     Indication: HYPERTENSION
     Route: 048
     Dates: start: 20170503
  5. IMDUR [Suspect]
     Active Substance: ISOSORBIDE MONONITRATE
     Indication: HYPERTENSION
     Route: 048
     Dates: start: 20170430, end: 20170503
  6. NOVOLOG [Concomitant]
     Active Substance: INSULIN ASPART
     Route: 065
     Dates: start: 20170113
  7. LANTUS [Concomitant]
     Active Substance: INSULIN GLARGINE
     Route: 065
     Dates: start: 20170113
  8. IRINOTECAN [Concomitant]
     Active Substance: IRINOTECAN
     Dates: start: 20170815
  9. NORVASC [Concomitant]
     Active Substance: AMLODIPINE BESYLATE
     Route: 065
     Dates: start: 20110221
  10. CARDURA [Concomitant]
     Active Substance: DOXAZOSIN MESYLATE
     Route: 065
     Dates: start: 20160602
  11. OXALIPLATIN. [Concomitant]
     Active Substance: OXALIPLATIN
     Dates: start: 20170815
  12. PRILOSEC [Suspect]
     Active Substance: OMEPRAZOLE MAGNESIUM
     Route: 048
     Dates: start: 20140224

REACTIONS (13)
  - Chronic spontaneous urticaria [Unknown]
  - Sinus bradycardia [Unknown]
  - Tachycardia [Unknown]
  - Gastrointestinal wall thickening [Unknown]
  - Blood pressure decreased [Unknown]
  - Angina pectoris [Recovered/Resolved]
  - Presyncope [Unknown]
  - Syncope [Recovered/Resolved]
  - Cystitis [Unknown]
  - Osteoporosis [Unknown]
  - Spinal osteoarthritis [Unknown]
  - Pancreatic neoplasm [Unknown]
  - Sinus tachycardia [Unknown]

NARRATIVE: CASE EVENT DATE: 20170503
